FAERS Safety Report 21022748 (Version 1)
Quarter: 2022Q2

REPORT INFORMATION
  Report Type: Spontaneous
  Country: US (occurrence: US)
  Receive Date: 20220629
  Receipt Date: 20220629
  Transmission Date: 20220720
  Serious: No
  Sender: FDA-Public Use
  Company Number: US-PURACAP-US-2022EPCSPO00889

PATIENT
  Sex: Male

DRUGS (1)
  1. DUTASTERIDE [Suspect]
     Active Substance: DUTASTERIDE
     Indication: Alopecia
     Route: 048

REACTIONS (2)
  - Product use in unapproved indication [Unknown]
  - Paternal exposure during pregnancy [Unknown]
